FAERS Safety Report 18777745 (Version 1)
Quarter: 2021Q1

REPORT INFORMATION
  Report Type: Report from Study
  Country: JP (occurrence: JP)
  Receive Date: 20210123
  Receipt Date: 20210123
  Transmission Date: 20210419
  Serious: Yes (Congenital Anomaly)
  Sender: FDA-Public Use
  Company Number: JP-ACCORD-215293

PATIENT
  Weight: 2.1 kg

DRUGS (2)
  1. METHYLDOPA. [Suspect]
     Active Substance: METHYLDOPA
     Indication: ESSENTIAL HYPERTENSION
     Route: 064
  2. AMLODIPINE [Suspect]
     Active Substance: AMLODIPINE BESYLATE
     Indication: ESSENTIAL HYPERTENSION
     Route: 064

REACTIONS (2)
  - Conus medullaris syndrome [Unknown]
  - Foetal exposure during pregnancy [Unknown]
